FAERS Safety Report 10161118 (Version 1)
Quarter: 2014Q2

REPORT INFORMATION
  Report Type: Report from Study
  Country: IT (occurrence: IT)
  Receive Date: 20140508
  Receipt Date: 20140508
  Transmission Date: 20141212
  Serious: Yes (Death, Other)
  Sender: FDA-Public Use
  Company Number: IT-ROCHE-1391426

PATIENT
  Sex: 0

DRUGS (12)
  1. RITUXIMAB [Suspect]
     Indication: CHRONIC LYMPHOCYTIC LEUKAEMIA
     Dosage: ON DAY 1
     Route: 042
  2. RITUXIMAB [Suspect]
     Route: 042
  3. FLUDARABINE [Suspect]
     Indication: CHRONIC LYMPHOCYTIC LEUKAEMIA
     Dosage: FROM DAY 2 TO DAY 4
     Route: 065
  4. CYCLOPHOSPHAMIDE [Suspect]
     Indication: CHRONIC LYMPHOCYTIC LEUKAEMIA
     Dosage: DAY 2 TO DAY 4
     Route: 042
  5. CYCLOPHOSPHAMIDE [Suspect]
     Route: 065
  6. PREDNISONE [Suspect]
     Indication: CHRONIC LYMPHOCYTIC LEUKAEMIA
     Dosage: DAY 1 TO DAY 14
     Route: 065
  7. DOXORUBICIN [Suspect]
     Indication: CHRONIC LYMPHOCYTIC LEUKAEMIA
     Dosage: ON DAY 1
     Route: 065
  8. VINCRISTINE [Suspect]
     Indication: CHRONIC LYMPHOCYTIC LEUKAEMIA
     Dosage: ON DAY 1
     Route: 065
  9. CISPLATIN [Suspect]
     Indication: CHRONIC LYMPHOCYTIC LEUKAEMIA
     Route: 065
  10. CYTARABINE [Suspect]
     Indication: CHRONIC LYMPHOCYTIC LEUKAEMIA
     Dosage: EVERY 12 H ON DAY 2
     Route: 065
  11. DEXAMETHASONE [Suspect]
     Indication: CHRONIC LYMPHOCYTIC LEUKAEMIA
     Dosage: DAY 1 TO DAY 4
     Route: 065
  12. MELPHALAN [Suspect]
     Indication: CHRONIC LYMPHOCYTIC LEUKAEMIA
     Dosage: ON DAY 6
     Route: 065

REACTIONS (21)
  - Brain abscess [Fatal]
  - Septic shock [Fatal]
  - Pseudomonas infection [Fatal]
  - Mental disorder [Unknown]
  - Parvovirus infection [Unknown]
  - Pancytopenia [Unknown]
  - Haematotoxicity [Unknown]
  - Neutropenia [Unknown]
  - Hypersensitivity [Unknown]
  - Hepatitis B [Unknown]
  - Ischaemic stroke [Unknown]
  - Haemolytic anaemia [Unknown]
  - Thrombocytopenia [Unknown]
  - Bacterial infection [Unknown]
  - Viral infection [Unknown]
  - Pyrexia [Unknown]
  - Thrombosis [Unknown]
  - Haemorrhage [Unknown]
  - Cardiotoxicity [Unknown]
  - Myelodysplastic syndrome [Unknown]
  - Mucosal inflammation [Unknown]
